FAERS Safety Report 22107932 (Version 1)
Quarter: 2023Q1

REPORT INFORMATION
  Report Type: Report from Study
  Country: US (occurrence: US)
  Receive Date: 20230317
  Receipt Date: 20230317
  Transmission Date: 20230417
  Serious: Yes (Hospitalization, Other)
  Sender: FDA-Public Use
  Company Number: US-JNJFOC-20220350616

PATIENT
  Sex: Female
  Weight: 62.7 kg

DRUGS (4)
  1. SELEXIPAG [Suspect]
     Active Substance: SELEXIPAG
     Indication: Pulmonary hypertension
     Route: 048
     Dates: start: 2017
  2. SELEXIPAG [Suspect]
     Active Substance: SELEXIPAG
     Route: 048
     Dates: start: 2016
  3. MACITENTAN [Suspect]
     Active Substance: MACITENTAN
     Indication: Product used for unknown indication
     Route: 048
     Dates: start: 2017
  4. ELIQUIS [Suspect]
     Active Substance: APIXABAN
     Route: 065

REACTIONS (11)
  - Arthralgia [Recovered/Resolved]
  - Anaemia [Unknown]
  - Cardiac failure [Recovering/Resolving]
  - Toxic shock syndrome [Unknown]
  - Haemorrhage [Unknown]
  - Atrial fibrillation [Unknown]
  - Intestinal haemorrhage [Recovered/Resolved]
  - Diarrhoea [Not Recovered/Not Resolved]
  - Swelling [Recovered/Resolved]
  - Erythema [Recovered/Resolved]
  - Off label use [Unknown]

NARRATIVE: CASE EVENT DATE: 20160101
